FAERS Safety Report 23587581 (Version 1)
Quarter: 2024Q1

REPORT INFORMATION
  Report Type: Spontaneous
  Country: US (occurrence: US)
  Receive Date: 20240301
  Receipt Date: 20240301
  Transmission Date: 20240409
  Serious: No
  Sender: FDA-Public Use
  Company Number: US-BRISTOL-MYERS SQUIBB COMPANY-2024-032419

PATIENT
  Age: 71 Year
  Sex: Male

DRUGS (8)
  1. REVLIMID [Suspect]
     Active Substance: LENALIDOMIDE
     Indication: Plasma cell myeloma
     Route: 048
     Dates: start: 20200203
  2. IPRATROPIUM [Concomitant]
     Active Substance: IPRATROPIUM
     Dates: start: 20200203
  3. PANTOPRAZOLE [Concomitant]
     Active Substance: PANTOPRAZOLE
     Dates: start: 20200203
  4. ACYCLOVIR [Concomitant]
     Active Substance: ACYCLOVIR
     Dates: start: 20200203
  5. CLONAZEPAM [Concomitant]
     Active Substance: CLONAZEPAM
     Dates: start: 20200203
  6. WARFARIN [Concomitant]
     Active Substance: WARFARIN
     Dates: start: 20200203
  7. SOTALOL [Concomitant]
     Active Substance: SOTALOL
     Dates: start: 20200203
  8. BUPROPION [Concomitant]
     Active Substance: BUPROPION
     Dates: start: 20200203

REACTIONS (1)
  - Infection [Recovering/Resolving]

NARRATIVE: CASE EVENT DATE: 20231201
